FAERS Safety Report 19480905 (Version 1)
Quarter: 2021Q3

REPORT INFORMATION
  Report Type: Spontaneous
  Country: US (occurrence: US)
  Receive Date: 20210701
  Receipt Date: 20210701
  Transmission Date: 20211014
  Serious: Yes (Hospitalization, Other)
  Sender: FDA-Public Use
  Company Number: US-SUN PHARMACEUTICAL INDUSTRIES LTD-2021R1-301809

PATIENT
  Age: 52 Year
  Sex: Female

DRUGS (6)
  1. OXALIPLATIN. [Suspect]
     Active Substance: OXALIPLATIN
     Indication: CHEMOTHERAPY
     Dosage: UNK, 85 MG/M2 GIVEN OVER 2 HOURS
     Route: 065
  2. FILGRASTIM [Suspect]
     Active Substance: FILGRASTIM
     Indication: CHEMOTHERAPY
     Dosage: UNK
     Route: 065
  3. FOLINIC ACID [Suspect]
     Active Substance: LEUCOVORIN
     Indication: CHEMOTHERAPY
     Dosage: UNK,400 MG/M2GIVEN OVER 2H
     Route: 065
  4. RECOMBINANT GRANULOCYTE COLONY STIMULATING FACTOR [Suspect]
     Active Substance: GRANULOCYTE COLONY-STIMULATING FACTOR NOS
     Indication: CHEMOTHERAPY
     Dosage: 480 MICROGRAM, DAILY
     Route: 058
  5. FLUOROURACIL. [Suspect]
     Active Substance: FLUOROURACIL
     Indication: CHEMOTHERAPY
     Dosage: UNK,400 MG/M2 OVER 15MIN
     Route: 065
  6. FLUOROURACIL. [Suspect]
     Active Substance: FLUOROURACIL
     Dosage: UNK,2400 MG/M2 GIVEN OVER 46 HOURS
     Route: 065

REACTIONS (9)
  - Diarrhoea [Recovered/Resolved]
  - Dysphagia [Recovered/Resolved]
  - Drug ineffective [Unknown]
  - Vomiting [Recovered/Resolved]
  - Chills [Recovered/Resolved]
  - Mucosal inflammation [Recovered/Resolved]
  - Neutropenia [Recovered/Resolved]
  - Mouth ulceration [Recovered/Resolved]
  - Nausea [Recovered/Resolved]
